FAERS Safety Report 4401116-6 (Version None)
Quarter: 2004Q3

REPORT INFORMATION
  Report Type: 
  Country: None (occurrence: None)
  Receive Date: 20040907
  Receipt Date: 20031107
  Transmission Date: 20050211
  Serious: Yes (Other)
  Sender: FDA-Public Use
  Company Number: US-BRISTOL-MYERS SQUIBB COMPANY-12430484

PATIENT
  Sex: Male
  Weight: 63 kg

DRUGS (5)
  1. COUMADIN [Suspect]
     Indication: DEEP VEIN THROMBOSIS
     Route: 048
     Dates: start: 20031001
  2. PAXIL [Concomitant]
     Route: 048
  3. TYLENOL W/ CODEINE NO. 3 [Concomitant]
     Dosage: 1 TABLET EVERY FOUR TO SIX HOURS.
     Route: 048
  4. NEUROTON [Concomitant]
  5. LOVENOX [Concomitant]

REACTIONS (1)
  - INTERNATIONAL NORMALISED RATIO DECREASED [None]
